FAERS Safety Report 6850644-2 (Version None)
Quarter: 2010Q3

REPORT INFORMATION
  Report Type: 
  Country: None (occurrence: None)
  Receive Date: 20100716
  Receipt Date: 20100707
  Transmission Date: 20110219
  Serious: Yes (Life-Threatening, Hospitalization, Disabling)
  Sender: FDA-Public Use
  Company Number: DE-AMGEN-QUU423865

PATIENT
  Sex: Female

DRUGS (16)
  1. ENBREL [Suspect]
     Indication: RHEUMATOID ARTHRITIS
     Route: 058
     Dates: start: 20011001, end: 20060701
  2. REMICADE [Suspect]
     Indication: RHEUMATOID ARTHRITIS
     Dosage: UNKNOWN
     Dates: start: 20070301, end: 20071001
  3. HUMIRA [Suspect]
     Indication: RHEUMATOID ARTHRITIS
     Dosage: UNKNOWN
     Dates: start: 20060801, end: 20061101
  4. RITUXIMAB [Suspect]
     Indication: PRODUCT USED FOR UNKNOWN INDICATION
     Dosage: UNKNOWN
     Dates: start: 20081112
  5. CYCLOSPORINE A [Suspect]
     Indication: RHEUMATOID ARTHRITIS
     Dosage: UNKNOWN
     Dates: start: 20040701, end: 20050401
  6. METHOTREXATE [Concomitant]
     Indication: RHEUMATOID ARTHRITIS
     Dosage: UNKNOWN
     Route: 048
     Dates: start: 19930301, end: 20020401
  7. METHOTREXATE [Concomitant]
     Dosage: UNKNOWN
     Route: 048
     Dates: start: 20080401, end: 20100101
  8. METHOTREXATE [Concomitant]
     Dosage: UNKNOWN
     Route: 048
     Dates: start: 20030501, end: 20070901
  9. ORENCIA [Concomitant]
     Indication: RHEUMATOID ARTHRITIS
     Dosage: UNKNOWN
     Dates: start: 20090901
  10. ACLASTA [Concomitant]
     Dosage: 2 DOSE EVERY 1 TOT
     Route: 042
     Dates: start: 20090601, end: 20090601
  11. PREDNISOLONE [Concomitant]
     Route: 048
  12. HYDROMORPHONE HCL [Concomitant]
     Route: 048
  13. DHC [Concomitant]
     Route: 048
  14. AMITRIPTYLINE HCL [Concomitant]
     Route: 048
  15. NOVONORM [Concomitant]
     Route: 048
  16. METOHEXAL [Concomitant]
     Route: 048

REACTIONS (1)
  - GASTRIC CANCER STAGE III [None]
